FAERS Safety Report 6862960-9 (Version None)
Quarter: 2010Q3

REPORT INFORMATION
  Report Type: 
  Country: None (occurrence: None)
  Receive Date: 20100721
  Receipt Date: 20100712
  Transmission Date: 20110219
  Serious: Yes (Hospitalization, Other)
  Sender: FDA-Public Use
  Company Number: JP-PFIZER INC-2010068315

PATIENT
  Age: 61 Year
  Sex: Male
  Weight: 51 kg

DRUGS (9)
  1. ZITHROMAC SR [Suspect]
     Indication: INFECTION PROPHYLAXIS
     Dosage: 2 G, 1X/DAY
     Route: 048
     Dates: start: 20090923, end: 20090923
  2. BISOLVON [Suspect]
     Indication: PRODUCTIVE COUGH
     Dosage: 4 MG, 3X/DAY
     Route: 048
     Dates: start: 20090925, end: 20091002
  3. BISOLVON [Suspect]
     Dosage: 4 MG, 1X/DAY
     Route: 042
     Dates: start: 20090924, end: 20090925
  4. DEPAS [Concomitant]
     Indication: INSOMNIA
     Dosage: 0.5 MG, 1X/DAY
     Route: 048
     Dates: start: 20090918, end: 20090921
  5. MARZULENE [Concomitant]
     Indication: GASTRITIS PROPHYLAXIS
     Dosage: 0.5 G, 3X/DAY
     Route: 048
     Dates: start: 20090925, end: 20091004
  6. CALONAL [Concomitant]
     Indication: ANALGESIC THERAPY
     Dosage: 400 MG, 3X/DAY
     Route: 048
     Dates: start: 20090925, end: 20091004
  7. DICLOFENAC SODIUM [Concomitant]
     Indication: ANALGESIC THERAPY
     Dosage: 25 MG, 2X/DAY
     Route: 054
     Dates: start: 20090925, end: 20090930
  8. HARNAL [Concomitant]
     Indication: BENIGN PROSTATIC HYPERPLASIA
     Dosage: 0.2 MG, 1X/DAY
     Route: 048
     Dates: start: 20090917, end: 20091008
  9. STRONG NEO-MINOPHAGEN C [Concomitant]
     Dosage: 20 ML, 1X/DAY
     Route: 042
     Dates: start: 20090927, end: 20090929

REACTIONS (1)
  - CHOLANGITIS [None]
